FAERS Safety Report 10272296 (Version 3)
Quarter: 2014Q3

REPORT INFORMATION
  Report Type: Spontaneous
  Country: US (occurrence: None)
  Receive Date: 20140627
  Receipt Date: 20140811
  Transmission Date: 20150326
  Serious: Yes (Other)
  Sender: FDA-Public Use
  Company Number: AUR-APU-2014-06598

PATIENT
  Sex: Male

DRUGS (1)
  1. METFORMIN [Suspect]
     Active Substance: METFORMIN HYDROCHLORIDE
     Indication: DIABETES MELLITUS
     Dosage: 1 DF
     Dates: start: 20140604, end: 20140614

REACTIONS (4)
  - Product quality issue [None]
  - Product substitution issue [None]
  - Drug ineffective [None]
  - Blood glucose increased [None]
